FAERS Safety Report 24317045 (Version 2)
Quarter: 2024Q4

REPORT INFORMATION
  Report Type: Spontaneous
  Country: US (occurrence: US)
  Receive Date: 20240913
  Receipt Date: 20241007
  Transmission Date: 20250114
  Serious: No
  Sender: VIIV
  Company Number: US-ViiV Healthcare Limited-115655

PATIENT
  Age: 53 Year
  Sex: Male

DRUGS (3)
  1. CABOTEGRAVIR [Suspect]
     Active Substance: CABOTEGRAVIR
     Indication: Product used for unknown indication
     Dosage: UNK
     Route: 030
  2. CABOTEGRAVIR [Suspect]
     Active Substance: CABOTEGRAVIR
  3. CABOTEGRAVIR [Suspect]
     Active Substance: CABOTEGRAVIR

REACTIONS (6)
  - Anxiety [Recovering/Resolving]
  - Depression [Recovering/Resolving]
  - Restlessness [Recovering/Resolving]
  - Panic attack [Recovering/Resolving]
  - Night sweats [Recovering/Resolving]
  - Condition aggravated [Recovering/Resolving]

NARRATIVE: CASE EVENT DATE: 20240716
